FAERS Safety Report 15985301 (Version 1)
Quarter: 2019Q1

REPORT INFORMATION
  Report Type: Spontaneous
  Country: US (occurrence: US)
  Receive Date: 20190220
  Receipt Date: 20190220
  Transmission Date: 20190418
  Serious: No
  Sender: FDA-Public Use
  Company Number: US-AMGEN-USASP2019025460

PATIENT

DRUGS (3)
  1. STELARA [Concomitant]
     Active Substance: USTEKINUMAB
     Dosage: UNK
  2. HUMIRA [Concomitant]
     Active Substance: ADALIMUMAB
     Dosage: UNK
  3. ENBREL [Suspect]
     Active Substance: ETANERCEPT
     Indication: PRODUCT USED FOR UNKNOWN INDICATION
     Dosage: UNK
     Route: 065
     Dates: start: 2018

REACTIONS (4)
  - Asthenia [Unknown]
  - Fatigue [Unknown]
  - Drug effect incomplete [Unknown]
  - Nasopharyngitis [Recovered/Resolved]
